FAERS Safety Report 5227733-1 (Version None)
Quarter: 2007Q1

REPORT INFORMATION
  Report Type: 
  Country: None (occurrence: None)
  Receive Date: 20070202
  Receipt Date: 20070123
  Transmission Date: 20070707
  Serious: Yes (Other)
  Sender: FDA-Public Use
  Company Number: NL-PFIZER INC-2007008021

PATIENT
  Sex: Male
  Weight: 78 kg

DRUGS (5)
  1. VIAGRA [Suspect]
     Indication: ERECTILE DYSFUNCTION
     Route: 048
  2. LIPITOR [Concomitant]
     Route: 048
  3. ASPIRIN [Concomitant]
     Route: 048
  4. PERINDOPRIL ERBUMINE [Concomitant]
  5. NAPROXEN [Concomitant]
     Route: 048

REACTIONS (1)
  - PAIN IN EXTREMITY [None]
